FAERS Safety Report 10642225 (Version 2)
Quarter: 2014Q4

REPORT INFORMATION
  Report Type: Spontaneous
  Country: US (occurrence: US)
  Receive Date: 20141210
  Receipt Date: 20141230
  Transmission Date: 20150529
  Serious: Yes (Death)
  Sender: FDA-Public Use
  Company Number: US-009507513-1412USA004115

PATIENT
  Age: 22 Year
  Sex: Female

DRUGS (2)
  1. EMEND [Suspect]
     Active Substance: APREPITANT
     Indication: NAUSEA
     Dosage: 125 MG, FREQUENCY UNSPECIFIED
     Route: 048
     Dates: start: 20140107, end: 20141016
  2. EMEND [Suspect]
     Active Substance: APREPITANT
     Indication: VOMITING

REACTIONS (1)
  - Death [Fatal]

NARRATIVE: CASE EVENT DATE: 20141116
